FAERS Safety Report 25524058 (Version 2)
Quarter: 2025Q3

REPORT INFORMATION
  Report Type: Spontaneous
  Country: JP (occurrence: JP)
  Receive Date: 20250707
  Receipt Date: 20250723
  Transmission Date: 20251021
  Serious: Yes (Death, Other)
  Sender: MERCK SHARP & DOHME LLC
  Company Number: JP-009507513-2300986

PATIENT
  Age: 88 Year
  Sex: Female

DRUGS (4)
  1. KEYTRUDA [Suspect]
     Active Substance: PEMBROLIZUMAB
     Indication: Bile duct cancer stage III
     Route: 065
  2. DURVALUMAB [Suspect]
     Active Substance: DURVALUMAB
     Indication: Bile duct cancer stage III
  3. GEMCITABINE [Suspect]
     Active Substance: GEMCITABINE
     Indication: Bile duct cancer stage III
  4. CISPLATIN [Suspect]
     Active Substance: CISPLATIN
     Indication: Bile duct cancer stage III

REACTIONS (2)
  - Malignant neoplasm progression [Fatal]
  - Interstitial lung disease [Unknown]
